FAERS Safety Report 8905083 (Version 1)
Quarter: 2012Q4

REPORT INFORMATION
  Report Type: 
  Country: US (occurrence: US)
  Receive Date: 20121109
  Receipt Date: 20121109
  Transmission Date: 20130627
  Serious: No
  Sender: FDA-Public Use
  Company Number: US-ASTRAZENECA-2012SE82570

PATIENT
  Age: 22 Year
  Sex: Female
  Weight: 57.2 kg

DRUGS (5)
  1. SEROQUEL XR [Suspect]
     Indication: PSYCHOMOTOR HYPERACTIVITY
     Route: 048
  2. SEROQUEL XR [Suspect]
     Indication: PSYCHOMOTOR HYPERACTIVITY
     Route: 048
  3. SEROQUEL XR [Suspect]
     Indication: PSYCHOMOTOR HYPERACTIVITY
     Route: 048
  4. SEROQUEL XR [Suspect]
     Indication: PSYCHOMOTOR HYPERACTIVITY
     Route: 048
  5. GUANSACINE [Concomitant]

REACTIONS (3)
  - Agitation [Unknown]
  - Screaming [Unknown]
  - Off label use [Unknown]
